FAERS Safety Report 23704745 (Version 2)
Quarter: 2024Q2

REPORT INFORMATION
  Report Type: Spontaneous
  Country: US (occurrence: US)
  Receive Date: 20240404
  Receipt Date: 20240508
  Transmission Date: 20240716
  Serious: No
  Sender: FDA-Public Use
  Company Number: US-HALEON-2165778

PATIENT
  Age: 23 Year
  Sex: Female

DRUGS (1)
  1. SENSODYNE REPAIR AND PROTECT WHITENING [Suspect]
     Active Substance: STANNOUS FLUORIDE
     Indication: Product used for unknown indication
     Dates: start: 202403

REACTIONS (2)
  - Oral pain [Unknown]
  - Dental discomfort [Unknown]

NARRATIVE: CASE EVENT DATE: 20240301
